FAERS Safety Report 23263193 (Version 1)
Quarter: 2023Q4

REPORT INFORMATION
  Report Type: Spontaneous
  Country: US (occurrence: None)
  Receive Date: 20231204
  Receipt Date: 20231204
  Transmission Date: 20240110
  Serious: Yes (Death, Life-Threatening, Hospitalization)
  Sender: FDA-Public Use
  Company Number: None

PATIENT
  Age: 70 Year
  Sex: Female
  Weight: 100 kg

DRUGS (1)
  1. PAXLOVID [Suspect]
     Active Substance: NIRMATRELVIR\RITONAVIR
     Indication: COVID-19
     Dosage: FREQUENCY : TWICE A DAY;?
     Route: 048
     Dates: start: 20231130

REACTIONS (13)
  - Cardiopulmonary failure [None]
  - Lethargy [None]
  - Confusional state [None]
  - Dyspnoea [None]
  - Unresponsive to stimuli [None]
  - Cardiac arrest [None]
  - Pulseless electrical activity [None]
  - Blood sodium decreased [None]
  - Secretion discharge [None]
  - Hypoxia [None]
  - Acidosis [None]
  - Bradycardia [None]
  - General physical health deterioration [None]

NARRATIVE: CASE EVENT DATE: 20231202
